FAERS Safety Report 8016217-3 (Version None)
Quarter: 2011Q4

REPORT INFORMATION
  Report Type: 
  Country: None (occurrence: None)
  Receive Date: 20111228
  Receipt Date: 20111228
  Transmission Date: 20120403
  Serious: Yes (Hospitalization)
  Sender: FDA-Public Use
  Company Number: None

PATIENT
  Sex: Female
  Weight: 69.8539 kg

DRUGS (5)
  1. NEURONTIN [Suspect]
  2. VALIUM [Suspect]
  3. MS CONTIN [Suspect]
  4. CELEXA [Suspect]
  5. DILAUDID [Suspect]

REACTIONS (1)
  - WRONG DRUG ADMINISTERED [None]
